FAERS Safety Report 5361180-7 (Version None)
Quarter: 2007Q2

REPORT INFORMATION
  Report Type: 
  Country: None (occurrence: None)
  Receive Date: 20070614
  Receipt Date: 20070605
  Transmission Date: 20071010
  Serious: Yes (Other)
  Sender: FDA-Public Use
  Company Number: LIT-607-001

PATIENT
  Age: 77 Year
  Sex: Female

DRUGS (1)
  1. LIDOCAINE [Suspect]

REACTIONS (8)
  - CARDIOMYOPATHY [None]
  - ELECTROCARDIOGRAM QT PROLONGED [None]
  - FLAIL CHEST [None]
  - HYPOKALAEMIA [None]
  - HYPOXIA [None]
  - PNEUMOTHORAX [None]
  - VENTRICULAR FIBRILLATION [None]
  - VENTRICULAR TACHYCARDIA [None]
